FAERS Safety Report 20112334 (Version 2)
Quarter: 2021Q4

REPORT INFORMATION
  Report Type: Report from Study
  Country: US (occurrence: US)
  Receive Date: 20211125
  Receipt Date: 20211222
  Transmission Date: 20220303
  Serious: Yes (Hospitalization, Other)
  Sender: FDA-Public Use
  Company Number: US-Taiho Oncology Inc-EU-2021-03734

PATIENT
  Age: 81 Year
  Sex: Female

DRUGS (9)
  1. LONSURF [Suspect]
     Active Substance: TIPIRACIL HYDROCHLORIDE\TRIFLURIDINE
     Indication: Product used for unknown indication
     Dosage: 2 PILLS TWO TIMES A DAY, CYCLE-1
     Route: 048
     Dates: start: 20210921
  2. LONSURF [Suspect]
     Active Substance: TIPIRACIL HYDROCHLORIDE\TRIFLURIDINE
     Dosage: 3 TABLETS IN THE MORNING AND 3 TABLETS AT NIGHT. DOSE AND CYCLE UNKNOWN
     Route: 048
  3. APIXABAN [Concomitant]
     Active Substance: APIXABAN
  4. CEFPODOXIME [Concomitant]
     Active Substance: CEFPODOXIME
  5. VITAMIN D3 [Concomitant]
     Active Substance: CHOLECALCIFEROL
  6. INSULIN GLARGINE [Concomitant]
     Active Substance: INSULIN GLARGINE
  7. IMODIUM [Concomitant]
     Active Substance: LOPERAMIDE HYDROCHLORIDE
  8. ANTACID [Concomitant]
     Active Substance: ALUMINUM HYDROXIDE\CALCIUM CARBONATE\DIMETHICONE\MAGNESIUM HYDROXIDE
  9. ELIQUIS [Concomitant]
     Active Substance: APIXABAN

REACTIONS (3)
  - Stoma site haemorrhage [Unknown]
  - Haemoglobin decreased [Unknown]
  - Vomiting [Recovered/Resolved]

NARRATIVE: CASE EVENT DATE: 20211111
